FAERS Safety Report 10925820 (Version 1)
Quarter: 2015Q1

REPORT INFORMATION
  Report Type: Spontaneous
  Country: US (occurrence: None)
  Receive Date: 20150129
  Receipt Date: 20150129
  Transmission Date: 20150721
  Serious: Yes (Hospitalization)
  Sender: FDA-Public Use
  Company Number: A-NJ2014-105357

PATIENT
  Age: 43 Year
  Sex: Female

DRUGS (6)
  1. PAXIL [Concomitant]
     Active Substance: PAROXETINE HYDROCHLORIDE
  2. OPSUMIT [Suspect]
     Active Substance: MACITENTAN
     Indication: PULMONARY ARTERIAL HYPERTENSION
     Route: 048
     Dates: start: 20140812
  3. SILDENAFIL. [Concomitant]
     Active Substance: SILDENAFIL
  4. SPIRONOLACTONE. [Concomitant]
     Active Substance: SPIRONOLACTONE
  5. REMODULIN [Concomitant]
     Active Substance: TREPROSTINIL
  6. LASIX [Concomitant]
     Active Substance: FUROSEMIDE

REACTIONS (6)
  - Dyspnoea [None]
  - Pain in extremity [None]
  - Mobility decreased [None]
  - Chest pain [None]
  - Anxiety [None]
  - Fluid retention [None]

NARRATIVE: CASE EVENT DATE: 201409
